FAERS Safety Report 13364148 (Version 1)
Quarter: 2017Q1

REPORT INFORMATION
  Report Type: Spontaneous
  Country: FR (occurrence: FR)
  Receive Date: 20170323
  Receipt Date: 20170323
  Transmission Date: 20170429
  Serious: Yes (Hospitalization)
  Sender: FDA-Public Use
  Company Number: FR-JNJFOC-20170323843

PATIENT
  Age: 15 Year
  Sex: Female

DRUGS (3)
  1. TRIAFEMI [Suspect]
     Active Substance: ETHINYL ESTRADIOL\NORGESTREL
     Indication: CONTRACEPTION
     Dosage: 21 OUT OF 28 DAYS
     Route: 048
     Dates: start: 20170301, end: 20170308
  2. CURACNE [Suspect]
     Active Substance: ISOTRETINOIN
     Indication: ACNE
     Route: 048
     Dates: start: 20170301, end: 20170308
  3. GELTIM LP [Concomitant]
     Active Substance: TIMOLOL MALEATE
     Indication: ACNE
     Dosage: SINGLE DOSE
     Route: 065

REACTIONS (2)
  - Migraine with aura [Recovered/Resolved]
  - Visual field defect [Recovered/Resolved]

NARRATIVE: CASE EVENT DATE: 20170308
